FAERS Safety Report 7623274 (Version 4)
Quarter: 2012Q4

REPORT INFORMATION
  Report Type: Report from Study
  Country: GB (occurrence: GB)
  Receive Date: 20101011
  Receipt Date: 20121012
  Transmission Date: 20130627
  Serious: Yes (Death, Hospitalization)
  Sender: FDA-Public Use
  Company Number: GB-PFIZER INC-GB-WYE-G06775810

PATIENT
  Age: 70 Year
  Sex: Female

DRUGS (13)
  1. GEMTUZUMAB OZOGAMICIN [Suspect]
     Indication: ACUTE MYELOID LEUKAEMIA
     Dosage: 5.0 mg, 1x/Tot
     Route: 042
     Dates: start: 20100915, end: 20100925
  2. CYTARABINE [Suspect]
     Indication: ACUTE MYELOID LEUKAEMIA
     Dosage: 20.0 mg, 2x/day
     Dates: start: 20100916, end: 20100925
  3. ACICLOVIR [Concomitant]
     Dosage: 400 mg, 2x/day
  4. LIPITOR [Concomitant]
     Dosage: 20 mg, 1x/day
  5. BENZYDAMINE [Concomitant]
     Dosage: 0.15 UNK, as needed
  6. CHLORPHENAMINE [Concomitant]
     Dosage: 4 mg, 4x/day
  7. CIPROFLOXACIN [Concomitant]
     Dosage: 500 mg, 2x/day
  8. DOMPERIDONE [Concomitant]
     Dosage: 10 mg, UNK
  9. FLUCONAZOLE [Concomitant]
     Dosage: 50 mg, 1x/day
  10. LANSOPRAZOLE [Concomitant]
     Dosage: 30 mg, 1x/day
     Route: 065
  11. LISINOPRIL [Concomitant]
     Dosage: 20 mg, 1x/day
     Route: 065
  12. NYSTATIN [Concomitant]
     Dosage: Mouthwash as required
     Route: 048
  13. SENNA [Concomitant]
     Dosage: 75 mg, 1x per 1 Prn
     Route: 065

REACTIONS (3)
  - Ischaemic stroke [Fatal]
  - Thalamic infarction [Not Recovered/Not Resolved]
  - Epilepsy [Not Recovered/Not Resolved]
